FAERS Safety Report 7262541-1 (Version None)
Quarter: 2011Q1

REPORT INFORMATION
  Report Type: 
  Country: None (occurrence: None)
  Receive Date: 20110130
  Receipt Date: 20101210
  Transmission Date: 20110831
  Serious: No
  Sender: FDA-Public Use
  Company Number: US-ABBOTT-10P-163-0690710-00

PATIENT
  Age: 44 Year
  Sex: Female

DRUGS (2)
  1. HUMIRA [Suspect]
     Indication: PSORIASIS
     Dosage: 80MG LOADING DOSE
     Dates: start: 20101209
  2. AMBIEN [Concomitant]
     Indication: INSOMNIA

REACTIONS (1)
  - INJECTION SITE HAEMORRHAGE [None]
